FAERS Safety Report 23650908 (Version 1)
Quarter: 2024Q1

REPORT INFORMATION
  Report Type: Spontaneous
  Country: TR (occurrence: TR)
  Receive Date: 20240320
  Receipt Date: 20240320
  Transmission Date: 20240410
  Serious: Yes (Life-Threatening, Hospitalization)
  Sender: FDA-Public Use
  Company Number: TR-STRIDES ARCOLAB LIMITED-2024SP003141

PATIENT
  Age: 18 Year
  Sex: Female
  Weight: 48 kg

DRUGS (1)
  1. VERAPAMIL [Suspect]
     Active Substance: VERAPAMIL HYDROCHLORIDE
     Indication: Arrhythmia supraventricular
     Dosage: 1.8 GRAM (15 TABLETS,SUSTAINED-RELEASE TABLETS)
     Route: 048

REACTIONS (7)
  - Oedema peripheral [Unknown]
  - Shock [Unknown]
  - Hypotension [Unknown]
  - Metabolic acidosis [Unknown]
  - Atrioventricular block complete [Recovered/Resolved]
  - Toxicity to various agents [Unknown]
  - Off label use [Unknown]
